FAERS Safety Report 25924154 (Version 1)
Quarter: 2025Q4

REPORT INFORMATION
  Report Type: Report from Study
  Country: CN (occurrence: CN)
  Receive Date: 20251015
  Receipt Date: 20251015
  Transmission Date: 20260118
  Serious: Yes (Hospitalization, Other)
  Sender: CHEPLAPHARM
  Company Number: CN-CHEPLA-2025011696

PATIENT
  Age: 59 Year
  Sex: Male

DRUGS (4)
  1. GEMCITABINE [Suspect]
     Active Substance: GEMCITABINE
     Indication: Pancreatic carcinoma
     Dosage: 8 CYCLES
     Dates: start: 202303, end: 202309
  2. CAPECITABINE [Suspect]
     Active Substance: CAPECITABINE
     Indication: Pancreatic carcinoma
     Dosage: 1 CYCLE?DAILY DOSE: 3 GRAM
     Route: 048
     Dates: start: 20231012
  3. PACLITAXEL [Suspect]
     Active Substance: PACLITAXEL
     Indication: Pancreatic carcinoma
     Dosage: 8 CYCLES
     Dates: start: 202303, end: 202309
  4. SINTILIMAB [Suspect]
     Active Substance: SINTILIMAB
     Indication: Pancreatic carcinoma
     Dosage: 200 MG ON DAY 1
     Route: 042
     Dates: start: 20231012

REACTIONS (2)
  - Small intestinal obstruction [Not Recovered/Not Resolved]
  - Neutropenia [Unknown]

NARRATIVE: CASE EVENT DATE: 20231108
